FAERS Safety Report 15333713 (Version 1)
Quarter: 2018Q3

REPORT INFORMATION
  Report Type: Spontaneous
  Country: JP (occurrence: JP)
  Receive Date: 20180830
  Receipt Date: 20180830
  Transmission Date: 20181010
  Serious: Yes (Hospitalization)
  Sender: FDA-Public Use
  Company Number: JP-GLAXOSMITHKLINE-JP2018JPN153009

PATIENT
  Age: 80 Year
  Sex: Male

DRUGS (6)
  1. RELVAR ELLIPTA [Suspect]
     Active Substance: FLUTICASONE FUROATE\VILANTEROL TRIFENATATE
     Dosage: 200 ?G, QD, BEFORE MEAL
     Route: 055
     Dates: start: 201808
  2. RELVAR ELLIPTA [Suspect]
     Active Substance: FLUTICASONE FUROATE\VILANTEROL TRIFENATATE
     Dosage: 200 ?G, QD, BEFORE BEDTIME
     Route: 055
     Dates: start: 20180810
  3. DOXAZOSIN [Concomitant]
     Active Substance: DOXAZOSIN\DOXAZOSIN MESYLATE
     Dosage: 1 MG, 1D
  4. KIPRES [Concomitant]
     Active Substance: MONTELUKAST SODIUM
     Dosage: 10 MG, 1D
  5. AMLODIPINE [Concomitant]
     Active Substance: AMLODIPINE BESYLATE
     Dosage: 10 MG, 1D
  6. RELVAR ELLIPTA [Suspect]
     Active Substance: FLUTICASONE FUROATE\VILANTEROL TRIFENATATE
     Indication: COUGH
     Dosage: 100 ?G, QD
     Route: 055
     Dates: start: 20180809

REACTIONS (4)
  - Oral candidiasis [Recovered/Resolved]
  - Stomatitis [Recovering/Resolving]
  - Dysgeusia [Recovering/Resolving]
  - Coating in mouth [Recovered/Resolved]

NARRATIVE: CASE EVENT DATE: 20180814
